FAERS Safety Report 7917299-7 (Version None)
Quarter: 2011Q4

REPORT INFORMATION
  Report Type: 
  Country: None (occurrence: None)
  Receive Date: 20111114
  Receipt Date: 20111104
  Transmission Date: 20120403
  Serious: Yes (Hospitalization)
  Sender: FDA-Public Use
  Company Number: 2011SP040442

PATIENT
  Age: 23 Year
  Sex: Female
  Weight: 106 kg

DRUGS (2)
  1. DESOGESTREL AND ETHINYL ESTRADIOL [Suspect]
     Indication: CONTRACEPTION
     Dosage: ;QD;PO
     Route: 048
     Dates: start: 20110822
  2. DESOGESTREL AND ETHINYL ESTRADIOL [Suspect]
     Indication: CONTRACEPTION
     Dosage: ;QD;PO
     Route: 048
     Dates: start: 20110601, end: 20110708

REACTIONS (5)
  - MATERNAL EXPOSURE DURING PREGNANCY [None]
  - NAUSEA [None]
  - ABORTION SPONTANEOUS [None]
  - INAPPROPRIATE SCHEDULE OF DRUG ADMINISTRATION [None]
  - PREGNANCY ON ORAL CONTRACEPTIVE [None]
